FAERS Safety Report 5612950-9 (Version None)
Quarter: 2008Q1

REPORT INFORMATION
  Report Type: 
  Country: None (occurrence: None)
  Receive Date: 20080204
  Receipt Date: 20080124
  Transmission Date: 20080703
  Serious: Yes (Hospitalization, Other)
  Sender: FDA-Public Use
  Company Number: AU-PFIZER INC-2007105903

PATIENT
  Sex: Female

DRUGS (6)
  1. CHANTIX [Suspect]
     Indication: EX-SMOKER
  2. ALL OTHER THERAPEUTIC PRODUCTS [Suspect]
  3. EFFEXOR [Concomitant]
  4. SEROQUEL [Concomitant]
  5. VALIUM [Concomitant]
  6. KALMA [Concomitant]

REACTIONS (9)
  - AFFECTIVE DISORDER [None]
  - AGGRESSION [None]
  - AGITATION [None]
  - DEPRESSED LEVEL OF CONSCIOUSNESS [None]
  - DEPRESSED MOOD [None]
  - HOMICIDAL IDEATION [None]
  - INTENTIONAL OVERDOSE [None]
  - MULTIPLE DRUG OVERDOSE INTENTIONAL [None]
  - SUICIDAL BEHAVIOUR [None]
